FAERS Safety Report 5227732-X (Version None)
Quarter: 2007Q1

REPORT INFORMATION
  Report Type: 
  Country: None (occurrence: None)
  Receive Date: 20070202
  Receipt Date: 20070117
  Transmission Date: 20070707
  Serious: Yes (Other)
  Sender: FDA-Public Use
  Company Number: US-AMGEN-US202196

PATIENT
  Sex: Female
  Weight: 93.1 kg

DRUGS (11)
  1. ENBREL [Suspect]
     Indication: PSORIATIC ARTHROPATHY
     Route: 058
     Dates: start: 20051101, end: 20061101
  2. ENBREL [Suspect]
     Indication: PSORIASIS
  3. LOTREL [Concomitant]
  4. TOPROL-XL [Concomitant]
  5. LASIX [Concomitant]
  6. ESTRATEST [Concomitant]
  7. REMICADE [Concomitant]
  8. ASPIRIN [Concomitant]
  9. CALCIUM WITH VITAMIN D [Concomitant]
  10. CENTRUM SILVER [Concomitant]
  11. GLUCOSAMINE [Concomitant]

REACTIONS (6)
  - ABDOMINAL PAIN [None]
  - BACK PAIN [None]
  - INJECTION SITE ERYTHEMA [None]
  - INJECTION SITE IRRITATION [None]
  - PANCREATIC DISORDER [None]
  - PSORIASIS [None]
